FAERS Safety Report 6965272-8 (Version None)
Quarter: 2010Q3

REPORT INFORMATION
  Report Type: 
  Country: None (occurrence: None)
  Receive Date: 20100901
  Receipt Date: 20100818
  Transmission Date: 20110219
  Serious: Yes (Hospitalization)
  Sender: FDA-Public Use
  Company Number: ADR-I4-079

PATIENT
  Age: 80 Year
  Sex: Female

DRUGS (4)
  1. MEPROBAMATE [Suspect]
     Indication: ANXIETY
     Dosage: 400 MG, BID, ORAL
     Route: 048
     Dates: start: 20100401
  2. MEPROBAMATE [Suspect]
     Indication: STRESS
     Dosage: 400 MG, BID, ORAL
     Route: 048
     Dates: start: 20100401
  3. VITAMINS [Concomitant]
  4. HIGH BLOOD PRESSURE (BP) [Concomitant]

REACTIONS (3)
  - DIZZINESS [None]
  - NAUSEA [None]
  - VOMITING [None]
